FAERS Safety Report 4289027-0 (Version None)
Quarter: 2004Q1

REPORT INFORMATION
  Report Type: 
  Country: None (occurrence: None)
  Receive Date: 20040130
  Receipt Date: 20030529
  Transmission Date: 20041129
  Serious: Yes (Death)
  Sender: FDA-Public Use
  Company Number: THYR-10089

PATIENT
  Age: 82 Year
  Sex: Male

DRUGS (1)
  1. THYROGEN [Suspect]
     Dosage: 0.9 MG QD IM
     Route: 030

REACTIONS (1)
  - RENAL FAILURE ACUTE [None]
